FAERS Safety Report 16906762 (Version 1)
Quarter: 2019Q4

REPORT INFORMATION
  Report Type: Spontaneous
  Country: US (occurrence: US)
  Receive Date: 20191011
  Receipt Date: 20191011
  Transmission Date: 20200122
  Serious: No
  Sender: FDA-Public Use
  Company Number: US-CELGENEUS-USA-20191001156

PATIENT
  Age: 40 Year
  Sex: Male

DRUGS (2)
  1. METHIMOZOLE [Concomitant]
     Indication: HYPERTHYROIDISM
     Route: 065
     Dates: start: 2009
  2. OTEZLA [Suspect]
     Active Substance: APREMILAST
     Indication: PSORIASIS
     Dosage: 60 MILLIGRAM
     Route: 048
     Dates: start: 20190712

REACTIONS (2)
  - Nausea [Not Recovered/Not Resolved]
  - Product dose omission [Unknown]

NARRATIVE: CASE EVENT DATE: 2019
